FAERS Safety Report 4583806-8 (Version None)
Quarter: 2005Q1

REPORT INFORMATION
  Report Type: 
  Country: None (occurrence: None)
  Receive Date: 20050211
  Receipt Date: 20050127
  Transmission Date: 20050727
  Serious: Yes (Other)
  Sender: FDA-Public Use
  Company Number: EM2005-0043

PATIENT
  Sex: 0

DRUGS (15)
  1. PROLEUKIN [Suspect]
     Indication: LYMPHOMA
     Dosage: SEE IMAGE
     Route: 058
  2. MESNA [Concomitant]
  3. IFOSFAMIDE [Concomitant]
  4. ETOPOSIDE [Concomitant]
  5. G-CSF (GRANULOCYTE COLONY STIMULATING FACTOR) [Concomitant]
  6. QUINOLONE [Concomitant]
  7. FLUCONAZOLE [Concomitant]
  8. ACYCLOVIR [Concomitant]
  9. CARMUSTINE [Concomitant]
  10. CYTARABINE [Concomitant]
  11. MELPHALAN (MELPHALAN) [Concomitant]
  12. PERIPHERAL BLOOD STEM CELLS [Concomitant]
  13. DIPHENHYDRAMINE (DIPHENHYDRAMINE) [Concomitant]
  14. MEPERIDINE HCL [Concomitant]
  15. ACETAMINOPHEN [Concomitant]

REACTIONS (3)
  - CRYOFIBRINOGENAEMIA [None]
  - SKIN NECROSIS [None]
  - STEM CELL TRANSPLANT [None]
